FAERS Safety Report 13863602 (Version 4)
Quarter: 2017Q3

REPORT INFORMATION
  Report Type: Spontaneous
  Country: US (occurrence: US)
  Receive Date: 20170814
  Receipt Date: 20170916
  Transmission Date: 20171127
  Serious: Yes (Death, Hospitalization, Other)
  Sender: FDA-Public Use
  Company Number: US-AMGEN-USASP2017122637

PATIENT
  Age: 80 Year
  Sex: Female
  Weight: 53.61 kg

DRUGS (3)
  1. IRINOTECAN [Concomitant]
     Active Substance: IRINOTECAN
     Indication: SMALL CELL LUNG CANCER
     Dosage: 76 MG, Q3WK
     Dates: start: 20170727, end: 20170803
  2. NEULASTA [Suspect]
     Active Substance: PEGFILGRASTIM
     Indication: NEUTROPENIA
     Dosage: 6 MG, ONE TIME DOSE
     Route: 058
     Dates: start: 20170803, end: 20170804
  3. CARBOPLATIN. [Concomitant]
     Active Substance: CARBOPLATIN
     Indication: SMALL CELL LUNG CANCER
     Dosage: 312 MG, Q3WK
     Dates: start: 20170727, end: 20170803

REACTIONS (13)
  - Rectal haemorrhage [Unknown]
  - Sinus tachycardia [Unknown]
  - Vomiting [Unknown]
  - Hypotension [Unknown]
  - Disseminated intravascular coagulation [Fatal]
  - Sepsis [Unknown]
  - Fatigue [Unknown]
  - Small cell lung cancer metastatic [Fatal]
  - Lung infiltration [Unknown]
  - Supraventricular tachycardia [Fatal]
  - Nausea [Unknown]
  - Diarrhoea [Recovering/Resolving]
  - Blood pressure abnormal [Unknown]

NARRATIVE: CASE EVENT DATE: 201708
